FAERS Safety Report 9746353 (Version 1)
Quarter: 2013Q4

REPORT INFORMATION
  Report Type: Spontaneous
  Country: IE (occurrence: IE)
  Receive Date: 20131211
  Receipt Date: 20131211
  Transmission Date: 20140711
  Serious: Yes (Other)
  Sender: FDA-Public Use
  Company Number: IE-BRISTOL-MYERS SQUIBB COMPANY-19891811

PATIENT
  Age: 15 Year
  Sex: Male

DRUGS (3)
  1. ABILIFY TABS 5 MG [Suspect]
     Indication: BIPOLAR DISORDER
     Dosage: NV13-3NV13 5MG TAB?3NOV13-UNK 2.5MG TAB?22NV13-NV13 2.5ML ORAL SOLN
     Route: 048
     Dates: start: 201311
  2. ABILIFY ORAL SOLUTION [Suspect]
     Dates: start: 20131122
  3. RISPERIDONE [Concomitant]
     Dosage: TAB1MG TAB 3DC13-UNK?22NV13-3DC13 2MG ORALTABS?UNK-22NV13 2MG BID
     Route: 048

REACTIONS (3)
  - Nausea [Not Recovered/Not Resolved]
  - Vomiting [Not Recovered/Not Resolved]
  - Medication error [Not Recovered/Not Resolved]
